FAERS Safety Report 17436518 (Version 1)
Quarter: 2020Q1

REPORT INFORMATION
  Report Type: Spontaneous
  Country: US (occurrence: US)
  Receive Date: 20200219
  Receipt Date: 20200219
  Transmission Date: 20200409
  Serious: Yes (Other)
  Sender: FDA-Public Use
  Company Number: US-THE MENTHOLATUM COMPANY-2080667

PATIENT
  Age: 74 Year
  Sex: Female
  Weight: 77.73 kg

DRUGS (1)
  1. EQUATE COOL AND HEAT EXTRA STRENGTH [Suspect]
     Active Substance: MENTHOL
     Indication: ANALGESIC THERAPY
     Route: 061
     Dates: start: 20200213, end: 20200213

REACTIONS (3)
  - Swelling [Recovering/Resolving]
  - Rash [Recovering/Resolving]
  - Skin irritation [Recovering/Resolving]

NARRATIVE: CASE EVENT DATE: 20200213
